FAERS Safety Report 5646052-2 (Version None)
Quarter: 2008Q1

REPORT INFORMATION
  Report Type: 
  Country: None (occurrence: None)
  Receive Date: 20080227
  Receipt Date: 20080220
  Transmission Date: 20080703
  Serious: Yes (Hospitalization)
  Sender: FDA-Public Use
  Company Number: B0509358A

PATIENT
  Age: 92 Year
  Sex: Female

DRUGS (2)
  1. VALTREX [Suspect]
     Indication: HERPES ZOSTER
     Dosage: 1000 MG/ THREE TIMES PER DAY/ORAL
     Route: 048
     Dates: start: 20071214, end: 20071224
  2. ZANIDIP TABLET (ZANIDIP) [Suspect]
     Dosage: SEE IMAGE
     Route: 048

REACTIONS (4)
  - CONDITION AGGRAVATED [None]
  - CONFUSIONAL STATE [None]
  - HERPES ZOSTER [None]
  - RENAL FAILURE [None]
